FAERS Safety Report 12450947 (Version 1)
Quarter: 2016Q2

REPORT INFORMATION
  Report Type: Spontaneous
  Country: US (occurrence: US)
  Receive Date: 20160609
  Receipt Date: 20160609
  Transmission Date: 20160815
  Serious: Yes (Other)
  Sender: FDA-Public Use
  Company Number: US-ASTRAZENECA-2016SE59462

PATIENT
  Age: 61 Year
  Sex: Male
  Weight: 138.3 kg

DRUGS (3)
  1. NEXIUM [Suspect]
     Active Substance: ESOMEPRAZOLE MAGNESIUM
     Indication: GASTROOESOPHAGEAL REFLUX DISEASE
     Route: 048
  2. NEXIUM [Suspect]
     Active Substance: ESOMEPRAZOLE MAGNESIUM
     Indication: OESOPHAGITIS
     Route: 048
  3. MULTIVITAMINS FOR MEN OVER 50 YEARS OLD [Concomitant]
     Dosage: DAILY
     Route: 065

REACTIONS (2)
  - Tonsil cancer [Recovered/Resolved]
  - Stomach mass [Unknown]

NARRATIVE: CASE EVENT DATE: 2013
